FAERS Safety Report 6247599-0 (Version None)
Quarter: 2009Q2

REPORT INFORMATION
  Report Type: 
  Country: None (occurrence: None)
  Receive Date: 20090626
  Receipt Date: 20090623
  Transmission Date: 20091009
  Serious: Yes (Other)
  Sender: FDA-Public Use
  Company Number: US-MERCK-0906USA03379

PATIENT
  Age: 40 Month
  Sex: Female
  Weight: 17 kg

DRUGS (3)
  1. SINGULAIR [Suspect]
     Indication: HYPERSENSITIVITY
     Route: 048
     Dates: start: 20090401, end: 20090101
  2. SINGULAIR [Suspect]
     Indication: ASTHMA
     Route: 048
     Dates: start: 20090401, end: 20090101
  3. ALBUTEROL [Concomitant]
     Indication: ASTHMA
     Route: 065
     Dates: start: 20080617

REACTIONS (6)
  - AGGRESSION [None]
  - AGITATION [None]
  - CRYING [None]
  - DEPRESSIVE SYMPTOM [None]
  - HOMICIDAL IDEATION [None]
  - INSOMNIA [None]
